FAERS Safety Report 24394589 (Version 3)
Quarter: 2025Q1

REPORT INFORMATION
  Report Type: Spontaneous
  Country: US (occurrence: US)
  Receive Date: 20241004
  Receipt Date: 20250101
  Transmission Date: 20250408
  Serious: No
  Sender: NOVARTIS
  Company Number: US-002147023-NVSC2024US195172

PATIENT
  Sex: Female

DRUGS (1)
  1. MEKINIST [Suspect]
     Active Substance: TRAMETINIB DIMETHYL SULFOXIDE
     Indication: Ovarian cancer
     Dosage: 2 MG, QD
     Route: 048
     Dates: start: 202409

REACTIONS (5)
  - Rash [Unknown]
  - Visual impairment [Unknown]
  - Vision blurred [Unknown]
  - Product use in unapproved indication [Unknown]
  - Alopecia [Unknown]
